FAERS Safety Report 11934112 (Version 1)
Quarter: 2016Q1

REPORT INFORMATION
  Report Type: Spontaneous
  Country: US (occurrence: None)
  Receive Date: 20160120
  Receipt Date: 20160120
  Transmission Date: 20160526
  Serious: No
  Sender: FDA-Public Use
  Company Number: None

PATIENT
  Age: 56 Year
  Sex: Female
  Weight: 74.84 kg

DRUGS (2)
  1. DULOXETINE HCL [Suspect]
     Active Substance: DULOXETINE HYDROCHLORIDE
     Indication: FIBROMYALGIA
     Route: 048
  2. TRAMADOL. [Concomitant]
     Active Substance: TRAMADOL

REACTIONS (7)
  - Nausea [None]
  - Gastric disorder [None]
  - Dizziness [None]
  - Gait disturbance [None]
  - Feeling abnormal [None]
  - Tremor [None]
  - Visual impairment [None]

NARRATIVE: CASE EVENT DATE: 20160118
